FAERS Safety Report 15405911 (Version 1)
Quarter: 2018Q3

REPORT INFORMATION
  Report Type: Spontaneous
  Country: LB (occurrence: LB)
  Receive Date: 20180920
  Receipt Date: 20180920
  Transmission Date: 20181010
  Serious: Yes (Other)
  Sender: FDA-Public Use
  Company Number: LB-JAZZ-2018-LB-013676

PATIENT
  Age: 53 Year
  Sex: Male

DRUGS (6)
  1. VENETOCLAX. [Suspect]
     Active Substance: VENETOCLAX
     Indication: T-CELL TYPE ACUTE LEUKAEMIA
     Dosage: DAILY AFTER A 5?DAY RAMP?UP STARTING WITH 20 MG/DAY TO 400 MG DAILY (NO AZOLE) FOR 20 DAYS
     Dates: start: 201801, end: 2018
  2. ASPARAGINASE [Suspect]
     Active Substance: ASPARAGINASE
     Indication: T-CELL TYPE ACUTE LEUKAEMIA
     Dosage: 6000 UNITS/M2 THREE  TIMES WEEKLY FOR NINE DOSES;
     Dates: start: 201801
  3. VINCRISTINE [Suspect]
     Active Substance: VINCRISTINE
     Indication: T-CELL TYPE ACUTE LEUKAEMIA
     Dosage: 1.5 MG/M2 (CAPPED AT 2 MG) WEEKLY FOR 4 WEEKS
     Dates: start: 201801
  4. CYTARABINE. [Suspect]
     Active Substance: CYTARABINE
     Indication: T-CELL TYPE ACUTE LEUKAEMIA
     Dosage: 70 MG
     Route: 037
     Dates: start: 201801
  5. PREDNISONE. [Suspect]
     Active Substance: PREDNISONE
     Indication: T-CELL TYPE ACUTE LEUKAEMIA
     Dosage: 60 MG/M2, QD
     Dates: start: 201801
  6. METHOTREXATE. [Suspect]
     Active Substance: METHOTREXATE
     Indication: T-CELL TYPE ACUTE LEUKAEMIA
     Dosage: 12 MG
     Dates: start: 201801

REACTIONS (4)
  - Infection [Recovering/Resolving]
  - Thrombocytopenia [Recovering/Resolving]
  - Cytopenia [Recovering/Resolving]
  - Anaemia [Recovering/Resolving]
